FAERS Safety Report 18394500 (Version 1)
Quarter: 2020Q4

REPORT INFORMATION
  Report Type: Spontaneous
  Country: CN (occurrence: CN)
  Receive Date: 20201016
  Receipt Date: 20201016
  Transmission Date: 20210114
  Serious: No
  Sender: FDA-Public Use
  Company Number: CN-TOLMAR, INC.-20CN023237

PATIENT
  Age: 30 Year
  Sex: Male

DRUGS (1)
  1. ACYCLOVIR. [Suspect]
     Active Substance: ACYCLOVIR
     Indication: ENCEPHALITIS JAPANESE B
     Dosage: UNK

REACTIONS (1)
  - Muscular weakness [Unknown]
